FAERS Safety Report 11948148 (Version 1)
Quarter: 2016Q1

REPORT INFORMATION
  Report Type: Spontaneous
  Country: US (occurrence: None)
  Receive Date: 20160121
  Receipt Date: 20160121
  Transmission Date: 20160526
  Serious: Yes (Hospitalization)
  Sender: FDA-Public Use
  Company Number: None

PATIENT
  Age: 94 Year
  Sex: Male
  Weight: 48.6 kg

DRUGS (2)
  1. ACETAMINOPHEN AND CODEINE [Suspect]
     Active Substance: ACETAMINOPHEN\CODEINE PHOSPHATE
     Indication: PAIN
     Route: 048
     Dates: start: 20150831, end: 20150905
  2. TEMAZEPAM. [Suspect]
     Active Substance: TEMAZEPAM
     Indication: DEPRESSION
     Route: 048
     Dates: start: 20150507

REACTIONS (2)
  - Fall [None]
  - Dizziness [None]

NARRATIVE: CASE EVENT DATE: 20150903
